FAERS Safety Report 9012936 (Version 1)
Quarter: 2013Q1

REPORT INFORMATION
  Report Type: Spontaneous
  Country: US (occurrence: US)
  Receive Date: 20130114
  Receipt Date: 20130114
  Transmission Date: 20140127
  Serious: Yes (Death, Life-Threatening, Disabling, Other)
  Sender: FDA-Public Use
  Company Number: US-GLAXOSMITHKLINE-A1007406A

PATIENT
  Age: 51 Year
  Sex: Female

DRUGS (8)
  1. ADVAIR [Suspect]
     Indication: ASTHMA
     Dosage: 1PUFF TWICE PER DAY
     Route: 055
  2. VENTOLIN HFA [Suspect]
     Indication: ASTHMA
     Route: 055
  3. THEOPHYLLINE [Concomitant]
  4. SIMVASTATIN [Concomitant]
  5. LISINOPRIL [Concomitant]
  6. KLOR CON [Concomitant]
  7. MECLIZINE [Concomitant]
  8. DULCOLAX [Concomitant]

REACTIONS (1)
  - Death [Fatal]
